FAERS Safety Report 8874433 (Version 2)
Quarter: 2012Q4

REPORT INFORMATION
  Report Type: 
  Country: SK (occurrence: SK)
  Receive Date: 20121029
  Receipt Date: 20121115
  Transmission Date: 20130627
  Serious: Yes (Hospitalization, Other)
  Sender: FDA-Public Use
  Company Number: SK-ELI_LILLY_AND_COMPANY-SK201210005609

PATIENT
  Age: 30 Year
  Sex: Female

DRUGS (1)
  1. ZYPADHERA [Suspect]
     Indication: SCHIZOPHRENIA, PARANOID TYPE
     Dosage: 300 mg, other, every two weeks
     Route: 030
     Dates: start: 20120520

REACTIONS (6)
  - Pallor [Recovered/Resolved]
  - Dry mouth [Recovered/Resolved]
  - Somnolence [Recovered/Resolved]
  - Dystonia [Recovered/Resolved]
  - Anxiety [Recovered/Resolved]
  - Sedation [Recovered/Resolved]
